FAERS Safety Report 6934812-7 (Version None)
Quarter: 2010Q3

REPORT INFORMATION
  Report Type: 
  Country: None (occurrence: None)
  Receive Date: 20100820
  Receipt Date: 20100806
  Transmission Date: 20110219
  Serious: Yes (Hospitalization)
  Sender: FDA-Public Use
  Company Number: PHHO2010DE11346

PATIENT
  Sex: Male
  Weight: 70 kg

DRUGS (4)
  1. CERTICAN [Suspect]
     Indication: RENAL TRANSPLANT
     Dosage: 0.75 MG, BID
     Route: 048
     Dates: start: 20100308, end: 20100726
  2. MYFORTIC [Suspect]
     Indication: RENAL TRANSPLANT
     Dosage: 720 MG, BID
     Route: 048
     Dates: start: 20091213
  3. MYFORTIC [Suspect]
     Dosage: 360 MG, BID
  4. URBASON [Suspect]

REACTIONS (4)
  - ANAEMIA [None]
  - FATIGUE [None]
  - LEUKOPENIA [None]
  - OPTIC ISCHAEMIC NEUROPATHY [None]
